FAERS Safety Report 8797580 (Version 2)
Quarter: 2015Q1

REPORT INFORMATION
  Report Type: Report from Study
  Country: US (occurrence: US)
  Receive Date: 20120919
  Receipt Date: 20150313
  Transmission Date: 20150721
  Serious: Yes (Death)
  Sender: FDA-Public Use
  Company Number: US-ROCHE-1123462

PATIENT
  Sex: Female

DRUGS (12)
  1. AVASTIN [Suspect]
     Active Substance: BEVACIZUMAB
     Indication: BRAIN NEOPLASM MALIGNANT
     Route: 065
     Dates: start: 20080305
  2. CLARITIN [Concomitant]
     Active Substance: LORATADINE
  3. LOPRESSOR [Concomitant]
     Active Substance: METOPROLOL TARTRATE
     Route: 065
  4. PRILOSEC [Concomitant]
     Active Substance: OMEPRAZOLE MAGNESIUM
     Route: 065
  5. IRINOTECAN [Concomitant]
     Active Substance: IRINOTECAN
  6. DILANTIN [Concomitant]
     Active Substance: PHENYTOIN
     Dosage: 200 MG IN THE MORNING AND 300 MG IN THE EVENING
     Route: 065
  7. LASIX [Concomitant]
     Active Substance: FUROSEMIDE
     Route: 065
  8. PAXIL (UNITED STATES) [Concomitant]
  9. KEPPRA [Concomitant]
     Active Substance: LEVETIRACETAM
     Route: 065
  10. DECADRON [Concomitant]
     Active Substance: DEXAMETHASONE
     Route: 065
  11. PHENOBARBITAL. [Concomitant]
     Active Substance: PHENOBARBITAL
  12. PEPCID [Concomitant]
     Active Substance: FAMOTIDINE

REACTIONS (5)
  - Nausea [Unknown]
  - Vomiting [Unknown]
  - Death [Fatal]
  - Depression [Unknown]
  - Asthenia [Unknown]
